FAERS Safety Report 17447342 (Version 2)
Quarter: 2020Q3

REPORT INFORMATION
  Report Type: Report from Study
  Country: IT (occurrence: IT)
  Receive Date: 20200221
  Receipt Date: 20200311
  Transmission Date: 20201105
  Serious: Yes (Other)
  Sender: FDA-Public Use
  Company Number: IT-ALLERGAN-2007921US

PATIENT
  Sex: Female

DRUGS (5)
  1. TACHIDOL [Suspect]
     Active Substance: ACETAMINOPHEN\CODEINE PHOSPHATE
     Indication: ANALGESIC THERAPY
     Dosage: 8 G
     Route: 048
     Dates: start: 20191126, end: 20191126
  2. ESCITALOPRAM OXALATE UNK [Suspect]
     Active Substance: ESCITALOPRAM OXALATE
     Indication: DEPRESSION
     Dosage: OVERDOSE: 70 MG
     Route: 048
     Dates: start: 20191126, end: 20191126
  3. CIPROFLOXACIN. [Suspect]
     Active Substance: CIPROFLOXACIN
     Indication: INFECTION
     Dosage: 8 DF
     Route: 048
     Dates: start: 20191126, end: 20191126
  4. SERACTIL [Suspect]
     Active Substance: DEXIBUPROFEN
     Indication: PAIN
     Dosage: 8 G
     Route: 048
     Dates: start: 20191126, end: 20191126
  5. ETORICOXIB. [Suspect]
     Active Substance: ETORICOXIB
     Indication: INFLAMMATION
     Dosage: 20 DF
     Route: 048
     Dates: start: 20191126, end: 20191126

REACTIONS (3)
  - Drug abuse [Recovering/Resolving]
  - Overdose [Unknown]
  - Sopor [Recovering/Resolving]

NARRATIVE: CASE EVENT DATE: 20191126
